FAERS Safety Report 10779290 (Version 1)
Quarter: 2015Q1

REPORT INFORMATION
  Report Type: Spontaneous
  Country: US (occurrence: None)
  Receive Date: 20150206
  Receipt Date: 20150206
  Transmission Date: 20150721
  Serious: Yes (Life-Threatening, Hospitalization)
  Sender: FDA-Public Use
  Company Number: None

PATIENT
  Age: 68 Year
  Sex: Male
  Weight: 73.94 kg

DRUGS (2)
  1. ZYDELIG [Suspect]
     Active Substance: IDELALISIB
     Indication: DISEASE RECURRENCE
     Dosage: 1 PILL BID ORAL
     Route: 048
     Dates: start: 20140901, end: 20150127
  2. ZYDELIG [Suspect]
     Active Substance: IDELALISIB
     Indication: LYMPHOMA
     Dosage: 1 PILL BID ORAL
     Route: 048
     Dates: start: 20140901, end: 20150127

REACTIONS (2)
  - Pneumonitis [None]
  - Fatigue [None]

NARRATIVE: CASE EVENT DATE: 20150127
